FAERS Safety Report 6321013-9 (Version None)
Quarter: 2009Q3

REPORT INFORMATION
  Report Type: 
  Country: None (occurrence: None)
  Receive Date: 20090822
  Receipt Date: 20081222
  Transmission Date: 20100115
  Serious: No
  Sender: FDA-Public Use
  Company Number: US-ABBOTT-08P-163-0494619-00

PATIENT
  Sex: Male
  Weight: 74.91 kg

DRUGS (5)
  1. NIASPAN [Suspect]
     Indication: LOW DENSITY LIPOPROTEIN DECREASED
     Dates: start: 20030101
  2. NIASPAN [Suspect]
     Indication: HIGH DENSITY LIPOPROTEIN DECREASED
  3. LIPITOR [Concomitant]
     Indication: BLOOD CHOLESTEROL
  4. ISOSORBIDE MONONITRATE [Concomitant]
     Indication: BLOOD CHOLESTEROL
  5. BISOPROLOL [Concomitant]
     Indication: BLOOD CHOLESTEROL

REACTIONS (2)
  - FLUSHING [None]
  - PRURITUS [None]
